FAERS Safety Report 8225796-2 (Version None)
Quarter: 2012Q1

REPORT INFORMATION
  Report Type: 
  Country: None (occurrence: None)
  Receive Date: 20120321
  Receipt Date: 20120313
  Transmission Date: 20120608
  Serious: Yes (Hospitalization)
  Sender: FDA-Public Use
  Company Number: FR-PFIZER INC-2012069126

PATIENT
  Age: 65 Year
  Sex: Female

DRUGS (15)
  1. NEBIVOLOL HCL [Concomitant]
     Dosage: UNK
  2. POTASSIUM CHLORIDE [Concomitant]
     Dosage: UNK
  3. CORDARONE [Suspect]
     Dosage: 200 MG, UNK
     Route: 048
  4. CYMBALTA [Suspect]
     Dosage: 60 MG, 2X/DAY
     Route: 048
  5. PARACETAMOL [Concomitant]
     Dosage: UNK
  6. DIGOXIN [Concomitant]
     Dosage: UNK
     Dates: end: 20111229
  7. COUMADIN [Concomitant]
     Dosage: UNK
  8. LYRICA [Concomitant]
     Dosage: UNK
  9. OXAZEPAM [Concomitant]
     Dosage: UNK
  10. ATARAX [Concomitant]
     Dosage: UNK
  11. ZOPICLONE [Concomitant]
     Dosage: UNK
  12. ALDACTONE [Suspect]
     Dosage: 25 MG, 1X/DAY
     Route: 048
  13. HYDROCHLOROTHIAZIDE AND RAMIPRIL [Suspect]
     Dosage: 1 DF A DAY
     Route: 048
  14. FERROUS SULFATE TAB [Concomitant]
     Dosage: UNK
  15. VOGALENE [Concomitant]
     Dosage: UNK

REACTIONS (4)
  - HYPONATRAEMIA [None]
  - INAPPROPRIATE ANTIDIURETIC HORMONE SECRETION [None]
  - THIRST [None]
  - HYPOKALAEMIA [None]
